FAERS Safety Report 4377823-0 (Version None)
Quarter: 2004Q2

REPORT INFORMATION
  Report Type: 
  Country: None (occurrence: None)
  Receive Date: 20040601
  Receipt Date: 20040223
  Transmission Date: 20050107
  Serious: No
  Sender: FDA-Public Use
  Company Number: 701677

PATIENT
  Age: 54 Year
  Sex: Male
  Weight: 77.5651 kg

DRUGS (1)
  1. AMEVIVE [Suspect]
     Indication: PSORIASIS
     Dosage: 15 MG QW IM
     Route: 030
     Dates: start: 20030901, end: 20031101

REACTIONS (1)
  - PRURITUS [None]
